FAERS Safety Report 8561935-1 (Version None)
Quarter: 2012Q3

REPORT INFORMATION
  Report Type: 
  Country: None (occurrence: None)
  Receive Date: 20120802
  Receipt Date: 20120730
  Transmission Date: 20120928
  Serious: Yes (Hospitalization, Other)
  Sender: FDA-Public Use
  Company Number: US-BAXTER-2012BAX008553

PATIENT
  Sex: Male

DRUGS (2)
  1. DIANEAL [Suspect]
     Indication: PERITONEAL DIALYSIS
     Route: 033
     Dates: end: 20120705
  2. DIANEAL [Suspect]
     Route: 033
     Dates: end: 20120705

REACTIONS (5)
  - HYPERKALAEMIA [None]
  - FAILURE TO THRIVE [None]
  - CARDIAC FAILURE CONGESTIVE [None]
  - HYPOPHAGIA [None]
  - BLOOD POTASSIUM ABNORMAL [None]
